FAERS Safety Report 18673138 (Version 1)
Quarter: 2020Q4

REPORT INFORMATION
  Report Type: Spontaneous
  Country: EE (occurrence: EE)
  Receive Date: 20201228
  Receipt Date: 20201228
  Transmission Date: 20210114
  Serious: Yes (Hospitalization)
  Sender: FDA-Public Use
  Company Number: EE-MYLANLABS-2020M1103995

PATIENT
  Age: 16 Year
  Sex: Male
  Weight: 132 kg

DRUGS (4)
  1. DOXYCYCLINE. [Suspect]
     Active Substance: DOXYCYCLINE
     Indication: ROSACEA
  2. DOXYCYCLINE. [Suspect]
     Active Substance: DOXYCYCLINE
     Indication: LYME DISEASE
     Dosage: 100 MG, QD
     Dates: start: 20201104
  3. DUPIXENT [Suspect]
     Active Substance: DUPILUMAB
     Indication: DERMATITIS ATOPIC
     Dosage: 300 MG, QOW
     Route: 058
     Dates: start: 20200813
  4. DICLOFENAC [Suspect]
     Active Substance: DICLOFENAC
     Indication: CHEST PAIN
     Dosage: 75 MG, BID
     Dates: start: 20201030, end: 20201119

REACTIONS (10)
  - Chest pain [Unknown]
  - Intercostal neuralgia [Unknown]
  - Product use issue [Unknown]
  - Pleural effusion [Unknown]
  - Respiratory rate decreased [Unknown]
  - Eosinophil count increased [Recovering/Resolving]
  - Medication error [Unknown]
  - Infection [Unknown]
  - Pleurisy [Not Recovered/Not Resolved]
  - Intentional product misuse [Unknown]

NARRATIVE: CASE EVENT DATE: 2020
